FAERS Safety Report 22361660 (Version 1)
Quarter: 2023Q2

REPORT INFORMATION
  Report Type: Report from Study
  Country: US (occurrence: US)
  Receive Date: 20230524
  Receipt Date: 20230524
  Transmission Date: 20230722
  Serious: Yes (Other)
  Sender: FDA-Public Use
  Company Number: US-002147023-NVSC2023US118146

PATIENT
  Sex: Male

DRUGS (1)
  1. COSENTYX [Suspect]
     Active Substance: SECUKINUMAB
     Indication: Product used for unknown indication
     Dosage: UNK
     Route: 065

REACTIONS (7)
  - Angina pectoris [Unknown]
  - Sinonasal obstruction [Unknown]
  - Psoriasis [Unknown]
  - Mass [Unknown]
  - Hypoacusis [Unknown]
  - Headache [Unknown]
  - Nerve injury [Unknown]
